FAERS Safety Report 10651854 (Version 1)
Quarter: 2014Q4

REPORT INFORMATION
  Report Type: Spontaneous
  Country: AT (occurrence: AT)
  Receive Date: 20141215
  Receipt Date: 20141215
  Transmission Date: 20150529
  Serious: Yes (Death)
  Sender: FDA-Public Use
  Company Number: AT-B.I. PHARMACEUTICALS,INC./RIDGEFIELD-2014-BI-60088BE

PATIENT
  Age: 58 Year
  Sex: Female

DRUGS (2)
  1. GILOTRIF [Suspect]
     Active Substance: AFATINIB
     Indication: ADENOCARCINOMA
     Dosage: 40 MG
     Route: 048
     Dates: start: 20140724, end: 20140919
  2. DOXYDYN [Suspect]
     Active Substance: DOXYCYCLINE HYDROCHLORIDE
     Indication: RASH
     Dosage: 200 MG
     Route: 065

REACTIONS (3)
  - Hepatic failure [Fatal]
  - Incorrect drug administration duration [None]
  - Rash [Unknown]

NARRATIVE: CASE EVENT DATE: 20140919
